FAERS Safety Report 24292763 (Version 1)
Quarter: 2024Q3

REPORT INFORMATION
  Report Type: Spontaneous
  Country: US (occurrence: None)
  Receive Date: 20240906
  Receipt Date: 20240906
  Transmission Date: 20241017
  Serious: No
  Sender: DOMPE FARMACEUTICI
  Company Number: US-FARMAPROD-202308-202310-3074

PATIENT
  Age: 70 Year
  Sex: Female

DRUGS (12)
  1. OXERVATE [Suspect]
     Active Substance: CENEGERMIN-BKBJ
     Indication: Neurotrophic keratopathy
     Route: 047
     Dates: start: 20231013
  2. OXERVATE [Suspect]
     Active Substance: CENEGERMIN-BKBJ
  3. ELIQUIS [Concomitant]
     Active Substance: APIXABAN
  4. FISH OIL [Concomitant]
     Active Substance: FISH OIL
     Dosage: 100-160 MG
  5. CALCIUM [Concomitant]
     Active Substance: CALCIUM
     Dosage: 500(1250)
  6. VITAMIN D3 [Concomitant]
     Active Substance: CHOLECALCIFEROL
  7. RISEDRONATE SODIUM [Concomitant]
     Active Substance: RISEDRONATE SODIUM
  8. VAGIFEM [Concomitant]
     Active Substance: ESTRADIOL
  9. NIFEDIPINE [Concomitant]
     Active Substance: NIFEDIPINE
  10. ARTIFICIAL TEARS [Concomitant]
  11. UNSPECIFIED INGREDIENT [Concomitant]
     Active Substance: UNSPECIFIED INGREDIENT
     Dosage: 0.05 %-1 %
  12. MIEBO [Concomitant]
     Active Substance: PERFLUOROHEXYLOCTANE

REACTIONS (2)
  - Eye irritation [Recovered/Resolved]
  - Hypoaesthesia [Unknown]

NARRATIVE: CASE EVENT DATE: 20231013
